FAERS Safety Report 5962923-1 (Version None)
Quarter: 2008Q4

REPORT INFORMATION
  Report Type: 
  Country: None (occurrence: None)
  Receive Date: 20081120
  Receipt Date: 20081120
  Transmission Date: 20090506
  Serious: No
  Sender: FDA-Public Use
  Company Number: None

PATIENT
  Sex: Female

DRUGS (2)
  1. SANOFI PASTEUR PPD [Suspect]
     Dosage: 0.1 ML X1 ID
     Route: 023
     Dates: start: 20081111
  2. SANOFI PASTEUR PPD [Suspect]
     Dosage: 0.1 ML X1 ID
     Route: 023
     Dates: start: 20081111

REACTIONS (3)
  - ERYTHEMA [None]
  - IMMEDIATE POST-INJECTION REACTION [None]
  - PRURITUS [None]
